FAERS Safety Report 5503458-X (Version None)
Quarter: 2007Q4

REPORT INFORMATION
  Report Type: 
  Country: None (occurrence: None)
  Receive Date: 20071031
  Receipt Date: 20071019
  Transmission Date: 20080405
  Serious: Yes (Other)
  Sender: FDA-Public Use
  Company Number: US-PFIZER INC-2007089645

PATIENT
  Sex: Female
  Weight: 61.2 kg

DRUGS (2)
  1. CHANTIX [Suspect]
     Indication: EX-SMOKER
     Dates: start: 20071007, end: 20071008
  2. NIACIN [Concomitant]

REACTIONS (7)
  - ACTIVITIES OF DAILY LIVING IMPAIRED [None]
  - DECREASED APPETITE [None]
  - NAUSEA [None]
  - SKIN LESION [None]
  - SWOLLEN TONGUE [None]
  - URTICARIA [None]
  - VERTIGO [None]
